FAERS Safety Report 8189946 (Version 6)
Quarter: 2012Q4

REPORT INFORMATION
  Report Type: 
  Country: US (occurrence: US)
  Receive Date: 20111019
  Receipt Date: 20121221
  Transmission Date: 20130627
  Serious: Yes (Hospitalization, Congenital Anomaly, Other)
  Sender: FDA-Public Use
  Company Number: US-PFIZER INC-2011246526

PATIENT
  Sex: Male
  Weight: 3.18 kg

DRUGS (11)
  1. ZOLOFT [Suspect]
     Indication: DEPRESSION
     Dosage: 100 mg, 1x/day
     Route: 064
     Dates: start: 20020709
  2. ZYRTEC [Concomitant]
     Indication: ASTHMA
     Dosage: 5-10 mg
     Route: 064
     Dates: start: 20030702
  3. BENADRYL [Concomitant]
     Dosage: UNK
     Route: 064
  4. ROLAIDS [Concomitant]
     Dosage: UNK
     Route: 064
  5. PRENATAL VITAMINS [Concomitant]
     Dosage: UNK
     Route: 064
  6. CLARITIN [Concomitant]
     Dosage: UNK
     Route: 064
  7. CLINDAMYCIN [Concomitant]
     Dosage: UNK
     Route: 064
  8. MAXAIR [Concomitant]
     Dosage: UNK
     Route: 064
  9. SINGULAIR [Concomitant]
     Dosage: UNK
     Route: 064
  10. ZITHROMAX [Concomitant]
     Dosage: UNK
     Route: 064
  11. MICROGESTIN [Concomitant]
     Indication: BIRTH CONTROL
     Dosage: UNK
     Route: 064

REACTIONS (19)
  - Foetal exposure during pregnancy [Not Recovered/Not Resolved]
  - Shone complex [Recovered/Resolved]
  - Mitral valve hypoplasia [Recovered/Resolved]
  - Supraventricular tachycardia [Recovered/Resolved]
  - Mental status changes [Unknown]
  - Hypoplastic left heart syndrome [Recovered/Resolved]
  - Congenital coronary artery malformation [Recovered/Resolved]
  - Congenital choroid plexus cyst [Unknown]
  - Cleft uvula [Unknown]
  - Cleft palate [Unknown]
  - Otitis media [Unknown]
  - Blood glucose increased [Unknown]
  - Velopharyngeal incompetence [Not Recovered/Not Resolved]
  - Speech disorder developmental [Unknown]
  - Adenoidal hypertrophy [Unknown]
  - Nasal obstruction [Unknown]
  - Dysarthria [Unknown]
  - Jaundice neonatal [Unknown]
  - Atrial septal defect [Unknown]
